APPROVED DRUG PRODUCT: MUSTARGEN
Active Ingredient: MECHLORETHAMINE HYDROCHLORIDE
Strength: 10MG/VIAL
Dosage Form/Route: INJECTABLE;INJECTION
Application: N006695 | Product #001
Applicant: RECORDATI RARE DISEASES INC
Approved: Approved Prior to Jan 1, 1982 | RLD: Yes | RS: No | Type: DISCN